FAERS Safety Report 6839531-3 (Version None)
Quarter: 2010Q3

REPORT INFORMATION
  Report Type: 
  Country: None (occurrence: None)
  Receive Date: 20100714
  Receipt Date: 20091202
  Transmission Date: 20110219
  Serious: No
  Sender: FDA-Public Use
  Company Number: A0833635A

PATIENT
  Age: 11 Year
  Sex: Male

DRUGS (2)
  1. FLOVENT [Suspect]
     Indication: ASTHMA
     Route: 055
     Dates: end: 20090101
  2. NO CONCURRENT MEDICATION [Concomitant]

REACTIONS (2)
  - GROWTH RETARDATION [None]
  - MYALGIA [None]
